FAERS Safety Report 26083199 (Version 1)
Quarter: 2025Q4

REPORT INFORMATION
  Report Type: Spontaneous
  Country: US (occurrence: US)
  Receive Date: 20251124
  Receipt Date: 20251124
  Transmission Date: 20260119
  Serious: No
  Sender: INSMED
  Company Number: US-INSMED, INC.-2025-01972-US

PATIENT
  Sex: Male

DRUGS (1)
  1. ARIKAYCE [Suspect]
     Active Substance: AMIKACIN
     Indication: Mycobacterial infection
     Dosage: 590 MILLIGRAM, QD
     Route: 055
     Dates: start: 20250430

REACTIONS (6)
  - Dry throat [Unknown]
  - Dry mouth [Unknown]
  - Therapy interrupted [Unknown]
  - Intentional dose omission [Unknown]
  - Device breakage [Unknown]
  - Device issue [Unknown]

NARRATIVE: CASE EVENT DATE: 20250101
